FAERS Safety Report 6897706-1 (Version None)
Quarter: 2010Q3

REPORT INFORMATION
  Report Type: 
  Country: None (occurrence: None)
  Receive Date: 20100802
  Receipt Date: 20070723
  Transmission Date: 20110219
  Serious: No
  Sender: FDA-Public Use
  Company Number: US-PFIZER INC-2007046658

PATIENT
  Sex: Female
  Weight: 59 kg

DRUGS (22)
  1. LYRICA [Suspect]
     Indication: COMPLEX PARTIAL SEIZURES
     Dates: start: 20061006
  2. NEURONTIN [Suspect]
     Indication: CONVULSION
     Dosage: FREQUENCY: TID
     Dates: start: 19990101
  3. ACETYLSALICYLIC ACID SRT [Concomitant]
  4. RELAFEN [Concomitant]
  5. PREDNISONE [Concomitant]
  6. IMURAN [Concomitant]
  7. KLONOPIN [Concomitant]
  8. PREMARIN [Concomitant]
  9. AMPICILLIN AND SULBACTAM [Concomitant]
  10. KEPPRA [Concomitant]
  11. SYNTHROID [Concomitant]
  12. PREVACID [Concomitant]
  13. PLAQUENIL [Concomitant]
  14. ALLEGRA [Concomitant]
  15. MONTELUKAST SODIUM [Concomitant]
  16. OCTREOTIDE ACETATE [Concomitant]
  17. VITAMIN D [Concomitant]
  18. SINECOD [Concomitant]
  19. ZOFEN [Concomitant]
  20. SALBUTAMOL [Concomitant]
  21. ULTRAM [Concomitant]
  22. DRUG, UNSPECIFIED [Concomitant]

REACTIONS (8)
  - ABDOMINAL PAIN [None]
  - DIPLOPIA [None]
  - DRUG INTOLERANCE [None]
  - EUPHORIC MOOD [None]
  - HEADACHE [None]
  - NEUROPATHY PERIPHERAL [None]
  - VISUAL IMPAIRMENT [None]
  - WEIGHT INCREASED [None]
